FAERS Safety Report 11416077 (Version 1)
Quarter: 2015Q3

REPORT INFORMATION
  Report Type: Spontaneous
  Country: US (occurrence: None)
  Receive Date: 20150824
  Receipt Date: 20150824
  Transmission Date: 20151125
  Serious: Yes (Hospitalization)
  Sender: FDA-Public Use
  Company Number: None

PATIENT
  Age: 57 Year
  Sex: Female

DRUGS (1)
  1. HARVONI [Suspect]
     Active Substance: LEDIPASVIR\SOFOSBUVIR
     Indication: HEPATITIS C
     Dosage: 90-400MG TABLET
     Route: 048
     Dates: start: 20150716

REACTIONS (4)
  - Loss of consciousness [None]
  - Ligament sprain [None]
  - Abasia [None]
  - Fall [None]

NARRATIVE: CASE EVENT DATE: 20150808
